FAERS Safety Report 9256884 (Version 1)
Quarter: 2013Q2

REPORT INFORMATION
  Report Type: Spontaneous
  Country: US (occurrence: None)
  Receive Date: 20130423
  Receipt Date: 20130423
  Transmission Date: 20140414
  Serious: Yes (Hospitalization)
  Sender: FDA-Public Use
  Company Number: 2013AP004479

PATIENT
  Age: 52 Year
  Sex: Male

DRUGS (5)
  1. CLONIDINE HYDROCHLORIDE [Suspect]
     Indication: HYPERTENSION
  2. LACTULOSE ORAL SOLUTION [Suspect]
     Indication: CONSTIPATION
  3. HYDRALAZINE [Suspect]
     Indication: HYPERTENSION
  4. AMLODIPINE [Concomitant]
  5. FERROUS SULFATE [Concomitant]

REACTIONS (7)
  - Nausea [None]
  - Vomiting [None]
  - Abdominal pain upper [None]
  - Gastrointestinal tract mucosal pigmentation [None]
  - Gastrointestinal tract mucosal pigmentation [None]
  - Intestinal dilatation [None]
  - Ileus [None]
